FAERS Safety Report 25369905 (Version 4)
Quarter: 2025Q3

REPORT INFORMATION
  Report Type: Report from Study
  Country: BR (occurrence: BR)
  Receive Date: 20250528
  Receipt Date: 20250714
  Transmission Date: 20251021
  Serious: Yes (Death, Other)
  Sender: NOVARTIS
  Company Number: BR-002147023-NVSC2025BR044046

PATIENT
  Sex: Female
  Weight: 39 kg

DRUGS (2)
  1. KISQALI [Suspect]
     Active Substance: RIBOCICLIB SUCCINATE
     Indication: Breast cancer
     Route: 065
     Dates: start: 202503
  2. KISQALI [Suspect]
     Active Substance: RIBOCICLIB SUCCINATE
     Indication: Metastases to bone

REACTIONS (11)
  - Death [Fatal]
  - Neutropenia [Not Recovered/Not Resolved]
  - Thrombocytopenia [Not Recovered/Not Resolved]
  - Decreased immune responsiveness [Not Recovered/Not Resolved]
  - Immunoglobulins decreased [Not Recovered/Not Resolved]
  - Anaemia [Not Recovered/Not Resolved]
  - Metastases to bone [Unknown]
  - Crohn^s disease [Unknown]
  - Decreased immune responsiveness [Recovered/Resolved]
  - Adverse drug reaction [Recovered/Resolved]
  - Anaemia [Recovered/Resolved]
